FAERS Safety Report 17391822 (Version 2)
Quarter: 2020Q1

REPORT INFORMATION
  Report Type: Spontaneous
  Country: NO (occurrence: NO)
  Receive Date: 20200207
  Receipt Date: 20200210
  Transmission Date: 20200409
  Serious: Yes (Death, Life-Threatening, Hospitalization, Disabling)
  Sender: FDA-Public Use
  Company Number: NO-ASTRAZENECA-2020SE17378

PATIENT
  Age: 67 Year
  Sex: Male

DRUGS (20)
  1. AMOXICILLIN MYLAN [Suspect]
     Active Substance: AMOXICILLIN
     Indication: DUODENAL ULCER
     Route: 048
     Dates: start: 20191220, end: 20191229
  2. PARACETAMOL ORIFARM [Concomitant]
     Indication: PYREXIA
     Dosage: 500 MG IF FEVER
     Route: 048
     Dates: start: 20200114
  3. NOBLIGAN [Concomitant]
     Active Substance: TRAMADOL HYDROCHLORIDE
     Indication: WOUND COMPLICATION
     Route: 048
     Dates: start: 20200114, end: 20200116
  4. FURIX [Concomitant]
     Indication: CARDIAC FAILURE
     Route: 048
     Dates: start: 20200101
  5. METOPROLOL SANDOZ [Concomitant]
     Active Substance: METOPROLOL
     Indication: CARDIAC FAILURE
     Route: 048
     Dates: start: 20200101
  6. KLEXANE [Concomitant]
     Active Substance: ENOXAPARIN
     Indication: THROMBOSIS PROPHYLAXIS
     Route: 058
     Dates: start: 20200102
  7. SPIRIX [Concomitant]
     Active Substance: SPIRONOLACTONE
     Indication: CARDIAC FAILURE
     Route: 048
     Dates: start: 20200101
  8. MEROPENEM FRESENIUS KABI [Concomitant]
     Active Substance: MEROPENEM
     Indication: WOUND INFECTION
     Route: 042
     Dates: start: 20200114
  9. MEROPENEM FRESENIUS KABI [Concomitant]
     Active Substance: MEROPENEM
     Indication: SEPSIS
     Route: 042
     Dates: start: 20200114
  10. ZOLPIDEM [Concomitant]
     Active Substance: ZOLPIDEM TARTRATE
     Indication: SLEEP DISORDER
     Dosage: 1 TABLET AT NIGHT WHEN NEEDED
     Route: 048
  11. TRAMAGETIC RETARD [Concomitant]
     Indication: WOUND COMPLICATION
     Route: 048
     Dates: start: 20200102, end: 20200116
  12. CETIRIZIN MYLAN [Concomitant]
     Indication: RASH PRURITIC
     Route: 048
     Dates: start: 20200101
  13. FORXIGA [Suspect]
     Active Substance: DAPAGLIFLOZIN
     Indication: TYPE 2 DIABETES MELLITUS
     Route: 048
  14. CLINDAMYCIN VILLERTON [Suspect]
     Active Substance: CLINDAMYCIN
     Indication: WOUND INFECTION
     Route: 042
     Dates: start: 20200109, end: 20200114
  15. MORFIN TAKEDA [Concomitant]
     Indication: WOUND COMPLICATION
     Dates: start: 20200114
  16. AFIPRAN [Concomitant]
     Active Substance: METOCLOPRAMIDE HYDROCHLORIDE
     Indication: NAUSEA
     Route: 048
     Dates: start: 20200114
  17. CEFOTAXIM SANDOZ [Concomitant]
     Indication: SEPSIS
     Route: 042
     Dates: start: 20200103, end: 20200114
  18. RAMIPRIL HEXAL [Concomitant]
     Active Substance: RAMIPRIL
     Indication: CARDIAC FAILURE
     Route: 048
     Dates: start: 20200101
  19. CLINDAMYCIN VILLERTON [Suspect]
     Active Substance: CLINDAMYCIN
     Indication: SEPSIS
     Route: 042
     Dates: start: 20200109, end: 20200114
  20. NOVORAPID [Concomitant]
     Active Substance: INSULIN ASPART
     Indication: TYPE 2 DIABETES MELLITUS
     Dosage: 2E WHEN BLOOD SUGAR GREATER THAN 12, 4E WHEN BLOOD SUGAR GREATER THAN 14, 6E WHEN BLOOD SUGAR GRE...
     Route: 058
     Dates: start: 20200114

REACTIONS (2)
  - Rash [Fatal]
  - Wound complication [Fatal]

NARRATIVE: CASE EVENT DATE: 20191226
